FAERS Safety Report 14351983 (Version 1)
Quarter: 2018Q1

REPORT INFORMATION
  Report Type: Spontaneous
  Country: CA (occurrence: CA)
  Receive Date: 20180104
  Receipt Date: 20180104
  Transmission Date: 20180509
  Serious: Yes (Other)
  Sender: FDA-Public Use
  Company Number: CA-TEVA-2018-CA-843547

PATIENT
  Age: 12 Year
  Sex: Male
  Weight: 36.8 kg

DRUGS (4)
  1. VITAMIN D [Suspect]
     Active Substance: CHOLECALCIFEROL
     Indication: VITAMIN SUPPLEMENTATION
     Dosage: 1000 IU DAILY SUPPLEMENTATION
     Route: 065
  2. CALCIUM CARBONATE. [Suspect]
     Active Substance: CALCIUM CARBONATE
     Indication: MINERAL SUPPLEMENTATION
     Dosage: 200 MG ELEMENTAL CALCIUM DAILY
     Route: 065
  3. SODIUM PHOSPHATE [Suspect]
     Active Substance: SODIUM PHOSPHATE
     Indication: HYPOPHOSPHATAEMIA
     Dosage: 36 MMOL PER DOSE TWICE DAILY
     Route: 048
  4. SODIUM PHOSPHATE [Suspect]
     Active Substance: SODIUM PHOSPHATE
     Indication: HYPOPHOSPHATAEMIA
     Dosage: 36 MMOL TWICE DAILY
     Route: 048

REACTIONS (2)
  - Nephrocalcinosis [Not Recovered/Not Resolved]
  - Nephrolithiasis [Recovered/Resolved]
